FAERS Safety Report 7065057-0 (Version None)
Quarter: 2010Q4

REPORT INFORMATION
  Report Type: 
  Country: None (occurrence: None)
  Receive Date: 20101027
  Receipt Date: 19900727
  Transmission Date: 20110411
  Serious: Yes (Death, Life-Threatening)
  Sender: FDA-Public Use
  Company Number: GB-ROCHE-900400451001

PATIENT
  Age: 78 Year
  Sex: Male

DRUGS (10)
  1. TIGASON [Suspect]
     Route: 048
     Dates: start: 19900219
  2. TIGASON [Suspect]
     Route: 048
     Dates: start: 19900302, end: 19900308
  3. METHOTREXATE [Suspect]
     Route: 048
     Dates: start: 19900312, end: 19900319
  4. METHOTREXATE [Suspect]
     Route: 048
     Dates: start: 19900324
  5. SPIRONOLACTONE [Concomitant]
     Route: 048
     Dates: start: 19870914
  6. FRUSEMIDE [Concomitant]
     Route: 048
     Dates: start: 19851021
  7. AMINOPHYLLINE [Concomitant]
     Route: 048
     Dates: start: 19871218
  8. PREDNISOLON [Concomitant]
     Route: 048
     Dates: start: 19870916
  9. CO-DYDRAMOL [Concomitant]
     Route: 048
     Dates: start: 19900316
  10. AMOXICILLIN TRIHYDRATE [Concomitant]
     Route: 048
     Dates: start: 19900328, end: 19900329

REACTIONS (2)
  - DEATH [None]
  - PANCYTOPENIA [None]
